FAERS Safety Report 9011905 (Version 1)
Quarter: 2012Q4

REPORT INFORMATION
  Report Type: Spontaneous
  Country: AU (occurrence: None)
  Receive Date: 20121228
  Receipt Date: 20121228
  Transmission Date: 20130627
  Serious: Yes (Hospitalization)
  Sender: FDA-Public Use
  Company Number: 2012000282

PATIENT
  Age: 71 Year
  Sex: Male

DRUGS (3)
  1. ACEON (PERINDOPRIL ERBUMINE) TABLET [Suspect]
     Indication: DRUG USE FOR UNKNOWN INDICATION
     Route: 048
     Dates: start: 2006
  2. UREMIDE (FUROSEMIDE) [Concomitant]
  3. PARACETAMOL (PARACETAMOL) [Concomitant]

REACTIONS (4)
  - Oedema peripheral [None]
  - Sinus congestion [None]
  - Cough [None]
  - Fall [None]
